FAERS Safety Report 19441751 (Version 1)
Quarter: 2021Q2

REPORT INFORMATION
  Report Type: Report from Study
  Country: CR (occurrence: CR)
  Receive Date: 20210621
  Receipt Date: 20210621
  Transmission Date: 20210717
  Serious: Yes (Other)
  Sender: FDA-Public Use
  Company Number: NVSC2020CR198569

PATIENT
  Age: 35 Year
  Sex: Male

DRUGS (2)
  1. SCAPHO [Suspect]
     Active Substance: SECUKINUMAB
     Indication: ANKYLOSING SPONDYLITIS
     Dosage: 150 MG, QMO
     Route: 058
     Dates: start: 20180927
  2. SCAPHO [Suspect]
     Active Substance: SECUKINUMAB
     Dosage: 150 MG
     Route: 058

REACTIONS (23)
  - Back pain [Not Recovered/Not Resolved]
  - Fibromyalgia [Not Recovered/Not Resolved]
  - Anosmia [Unknown]
  - Pyrexia [Unknown]
  - Dysstasia [Not Recovered/Not Resolved]
  - Speech disorder [Unknown]
  - Arthropathy [Recovering/Resolving]
  - Memory impairment [Not Recovered/Not Resolved]
  - Ageusia [Unknown]
  - Feeling abnormal [Unknown]
  - Oxygen consumption decreased [Unknown]
  - Myalgia [Not Recovered/Not Resolved]
  - Anxiety [Not Recovered/Not Resolved]
  - COVID-19 [Not Recovered/Not Resolved]
  - Joint stiffness [Recovering/Resolving]
  - Pain [Unknown]
  - Muscle rigidity [Not Recovered/Not Resolved]
  - Somnolence [Not Recovered/Not Resolved]
  - Ankylosing spondylitis [Not Recovered/Not Resolved]
  - Arthralgia [Recovering/Resolving]
  - Incorrect dose administered [Not Recovered/Not Resolved]
  - Oxygen saturation decreased [Unknown]
  - Investigation abnormal [Not Recovered/Not Resolved]
